FAERS Safety Report 7654811-X (Version None)
Quarter: 2011Q3

REPORT INFORMATION
  Report Type: 
  Country: None (occurrence: None)
  Receive Date: 20110803
  Receipt Date: 20110803
  Transmission Date: 20111222
  Serious: Yes (Other)
  Sender: FDA-Public Use
  Company Number: None

PATIENT
  Age: 68 Year
  Sex: Female
  Weight: 64.4108 kg

DRUGS (1)
  1. CIPRO [Suspect]
     Indication: URINARY TRACT INFECTION
     Dosage: 14 PILLS @500 MG
     Dates: start: 20090522

REACTIONS (7)
  - BLOOD URINE PRESENT [None]
  - ARTHRALGIA [None]
  - JOINT CREPITATION [None]
  - PAIN IN EXTREMITY [None]
  - BONE PAIN [None]
  - HAEMORRHAGE [None]
  - BURNING SENSATION [None]
